FAERS Safety Report 18467465 (Version 1)
Quarter: 2020Q4

REPORT INFORMATION
  Report Type: Spontaneous
  Country: US (occurrence: US)
  Receive Date: 20201104
  Receipt Date: 20201104
  Transmission Date: 20210114
  Serious: Yes (Life-Threatening, Hospitalization)
  Sender: FDA-Public Use
  Company Number: None

PATIENT
  Age: 74 Year
  Sex: Male
  Weight: 86.1 kg

DRUGS (3)
  1. WARFARIN [Suspect]
     Active Substance: WARFARIN
     Indication: HEART VALVE REPLACEMENT
     Dosage: ?          OTHER FREQUENCY:MONDAY + FRIDAY;?
     Route: 048
  2. WARFARIN [Suspect]
     Active Substance: WARFARIN
     Indication: SUPRAVENTRICULAR TACHYCARDIA
     Dosage: ?          OTHER FREQUENCY:MONDAY + FRIDAY;?
     Route: 048
  3. WARFARIN [Suspect]
     Active Substance: WARFARIN
     Dosage: ?          OTHER FREQUENCY:SU/TU/WE/TH/SAT;?
     Route: 048

REACTIONS (7)
  - Brain midline shift [None]
  - Brain oedema [None]
  - Eye pain [None]
  - Headache [None]
  - Hemiparesis [None]
  - Dysarthria [None]
  - International normalised ratio increased [None]

NARRATIVE: CASE EVENT DATE: 20201025
